FAERS Safety Report 9386351 (Version 2)
Quarter: 2013Q3

REPORT INFORMATION
  Report Type: Spontaneous
  Country: US (occurrence: US)
  Receive Date: 20130708
  Receipt Date: 20130826
  Transmission Date: 20140515
  Serious: Yes (Other)
  Sender: FDA-Public Use
  Company Number: US-BIOGENIDEC-2013BI060358

PATIENT
  Age: 46 Year
  Sex: Female

DRUGS (1)
  1. AVONEX [Suspect]
     Indication: MULTIPLE SCLEROSIS
     Route: 030
     Dates: start: 20130131, end: 20130714

REACTIONS (4)
  - Pulmonary hypertension [Not Recovered/Not Resolved]
  - Adverse event [Unknown]
  - Hepatic enzyme increased [Not Recovered/Not Resolved]
  - Influenza like illness [Not Recovered/Not Resolved]
